FAERS Safety Report 12416282 (Version 1)
Quarter: 2016Q2

REPORT INFORMATION
  Report Type: Spontaneous
  Country: AU (occurrence: AU)
  Receive Date: 20160530
  Receipt Date: 20160530
  Transmission Date: 20160815
  Serious: Yes (Other)
  Sender: FDA-Public Use
  Company Number: AU-PFIZER INC-2016270939

PATIENT
  Age: 62 Year
  Sex: Female

DRUGS (3)
  1. PANADEINE /00116401/ [Concomitant]
     Active Substance: ACETAMINOPHEN\CODEINE PHOSPHATE
     Indication: PAIN
  2. LYRICA [Suspect]
     Active Substance: PREGABALIN
     Dosage: 75 MG, DAILY
  3. OROXINE [Concomitant]
     Active Substance: LEVOTHYROXINE SODIUM
     Indication: THYROID DISORDER
     Dosage: 75 MG, 1X/DAY

REACTIONS (7)
  - Tremor [Unknown]
  - Parkinsonism [Unknown]
  - Tongue disorder [Unknown]
  - Dyskinesia [Unknown]
  - Condition aggravated [Unknown]
  - Masked facies [Unknown]
  - Suicidal ideation [Unknown]
